FAERS Safety Report 4819336-5 (Version None)
Quarter: 2005Q4

REPORT INFORMATION
  Report Type: 
  Country: None (occurrence: None)
  Receive Date: 20051103
  Receipt Date: 20051026
  Transmission Date: 20060501
  Serious: Yes (Hospitalization)
  Sender: FDA-Public Use
  Company Number: JO-AVENTIS-200519472GDDC

PATIENT
  Age: 57 Year
  Sex: Male
  Weight: 76.5 kg

DRUGS (3)
  1. LANTUS [Suspect]
     Indication: DIABETES MELLITUS
     Route: 058
     Dates: start: 20050517
  2. AMARYL [Suspect]
     Indication: DIABETES MELLITUS
     Route: 048
     Dates: start: 20050517
  3. ASPIRIN [Concomitant]
     Route: 048
     Dates: start: 20050101

REACTIONS (2)
  - CATARACT [None]
  - VISION BLURRED [None]
